FAERS Safety Report 17685665 (Version 1)
Quarter: 2020Q2

REPORT INFORMATION
  Report Type: Spontaneous
  Country: US (occurrence: US)
  Receive Date: 20200420
  Receipt Date: 20200420
  Transmission Date: 20200714
  Serious: No
  Sender: FDA-Public Use
  Company Number: US-CELGENEUS-USA-20200404035

PATIENT
  Sex: Female

DRUGS (2)
  1. OTEZLA [Suspect]
     Active Substance: APREMILAST
     Indication: OFF LABEL USE
  2. OTEZLA [Suspect]
     Active Substance: APREMILAST
     Indication: RASH PAPULOSQUAMOUS
     Dosage: 60 MILLIGRAM
     Route: 048
     Dates: start: 20180905

REACTIONS (2)
  - Rash papulosquamous [Not Recovered/Not Resolved]
  - Stress [Not Recovered/Not Resolved]
